FAERS Safety Report 18104138 (Version 1)
Quarter: 2020Q3

REPORT INFORMATION
  Report Type: Spontaneous
  Country: US (occurrence: US)
  Receive Date: 20200802
  Receipt Date: 20200802
  Transmission Date: 20201103
  Serious: Yes (Other)
  Sender: FDA-Public Use
  Company Number: None

PATIENT
  Age: 33 Year
  Sex: Female
  Weight: 58.5 kg

DRUGS (10)
  1. BIOTIN [Concomitant]
     Active Substance: BIOTIN
  2. CARAFATE [Concomitant]
     Active Substance: SUCRALFATE
  3. PARAGARD T 380A [Concomitant]
     Active Substance: COPPER
  4. HUMIRA [Suspect]
     Active Substance: ADALIMUMAB
     Indication: CROHN^S DISEASE
     Dosage: ?          QUANTITY:1 INJECTION(S);OTHER FREQUENCY:EVERY OTHER WEEK;?
     Route: 058
     Dates: start: 20090301
  5. VITAMIN D [Concomitant]
     Active Substance: VITAMIN D NOS
  6. DAILY MULTIVITAMIN [Concomitant]
     Active Substance: VITAMINS
  7. PROBIOTIC [Concomitant]
     Active Substance: PROBIOTICS NOS
  8. HUMIRA [Concomitant]
     Active Substance: ADALIMUMAB
  9. ZOLOFT [Concomitant]
     Active Substance: SERTRALINE HYDROCHLORIDE
  10. ALLERGY MEDS [Concomitant]

REACTIONS (1)
  - Oesophageal squamous cell carcinoma stage 0 [None]

NARRATIVE: CASE EVENT DATE: 20200318
